FAERS Safety Report 7297193-8 (Version None)
Quarter: 2011Q1

REPORT INFORMATION
  Report Type: 
  Country: None (occurrence: None)
  Receive Date: 20110216
  Receipt Date: 20110207
  Transmission Date: 20110831
  Serious: No
  Sender: FDA-Public Use
  Company Number: US-ASTRAZENECA-2011SE06906

PATIENT
  Age: 59 Year
  Sex: Male

DRUGS (2)
  1. SEROQUEL [Suspect]
     Indication: SEVERE MENTAL RETARDATION
     Route: 048
  2. SEROQUEL [Suspect]
     Indication: CEREBRAL PALSY
     Route: 048

REACTIONS (1)
  - LEUKOPENIA [None]
